FAERS Safety Report 19517144 (Version 1)
Quarter: 2021Q3

REPORT INFORMATION
  Report Type: Report from Study
  Country: US (occurrence: US)
  Receive Date: 20210712
  Receipt Date: 20210712
  Transmission Date: 20211014
  Serious: Yes (Hospitalization, Other)
  Sender: FDA-Public Use
  Company Number: US-BRISTOL-MYERS SQUIBB COMPANY-BMS-2019-102883

PATIENT
  Age: 49 Year
  Sex: Female
  Weight: 80.8 kg

DRUGS (9)
  1. NIVOLUMAB [Suspect]
     Active Substance: NIVOLUMAB
     Indication: HODGKIN^S DISEASE
     Dosage: 3 MILLIGRAM/KILOGRAM ON DAY 1
     Route: 042
     Dates: start: 20181219
  2. BRENTUXIMAB VEDOTIN [Suspect]
     Active Substance: BRENTUXIMAB VEDOTIN
     Indication: HODGKIN^S DISEASE
     Dosage: 1.2 MILLIGRAM/KILOGRAM ON DAYS 1 AND 15
     Route: 042
     Dates: start: 20181219, end: 20190215
  3. DOXORUBICIN [Suspect]
     Active Substance: DOXORUBICIN
     Indication: HODGKIN^S DISEASE
     Dosage: 25 MILLIGRAM/SQ. METER ON DAYS 1 AND 15
     Route: 042
     Dates: start: 20180219, end: 20190215
  4. DOXORUBICIN [Suspect]
     Active Substance: DOXORUBICIN
     Dosage: 47.2 MILLIGRAM, QD
     Route: 042
  5. BRENTUXIMAB VEDOTIN [Suspect]
     Active Substance: BRENTUXIMAB VEDOTIN
     Dosage: 70 MILLIGRAM, QD
     Route: 042
  6. VINBLASTINE [Suspect]
     Active Substance: VINBLASTINE
     Dosage: 11.5 MILLIGRAM, QD
     Route: 042
  7. DACARBAZINE. [Suspect]
     Active Substance: DACARBAZINE
     Indication: HODGKIN^S DISEASE
     Dosage: 375 MILLIGRAM/SQ. METER ON DAYS 1 AND 15
     Route: 042
     Dates: start: 20181219, end: 20190215
  8. DACARBAZINE. [Suspect]
     Active Substance: DACARBAZINE
     Dosage: 710 MILLIGRAM, QD
     Route: 042
  9. VINBLASTINE [Suspect]
     Active Substance: VINBLASTINE
     Indication: HODGKIN^S DISEASE
     Dosage: 6 MILLIGRAM/SQ. METER ON DAYS 1 AND 15
     Route: 042
     Dates: start: 20181219, end: 20190215

REACTIONS (5)
  - Dizziness [Recovered/Resolved]
  - Pyrexia [Recovered/Resolved]
  - Neutropenic colitis [Not Recovered/Not Resolved]
  - Infusion related reaction [Recovered/Resolved]
  - Colitis [Recovered/Resolved]

NARRATIVE: CASE EVENT DATE: 20190110
